FAERS Safety Report 5753096-9 (Version None)
Quarter: 2008Q2

REPORT INFORMATION
  Report Type: 
  Country: None (occurrence: None)
  Receive Date: 20080527
  Receipt Date: 20080506
  Transmission Date: 20081010
  Serious: Yes (Death, Hospitalization, Other)
  Sender: FDA-Public Use
  Company Number: 2008-00029

PATIENT
  Age: 49 Year
  Sex: Male
  Weight: 180 kg

DRUGS (4)
  1. VELCADE [Suspect]
     Indication: MULTIPLE MYELOMA
     Dosage: 1MG/M2
     Dates: start: 20071101, end: 20071130
  2. DOXIL [Suspect]
     Indication: MULTIPLE MYELOMA
     Dosage: 5 MG/M2
  3. REVLIMID [Suspect]
     Indication: DRUG USE FOR UNKNOWN INDICATION
  4. DEXAMETHASONE TAB [Concomitant]

REACTIONS (5)
  - CONSTIPATION [None]
  - DEEP VEIN THROMBOSIS [None]
  - GRAND MAL CONVULSION [None]
  - MUSCLE SPASMS [None]
  - PULMONARY EMBOLISM [None]
